FAERS Safety Report 20016155 (Version 1)
Quarter: 2021Q4

REPORT INFORMATION
  Report Type: Spontaneous
  Country: US (occurrence: None)
  Receive Date: 20211102
  Receipt Date: 20211102
  Transmission Date: 20220303
  Serious: Yes (Disabling)
  Sender: FDA-Public Use
  Company Number: None

PATIENT
  Age: 29 Year
  Sex: Female
  Weight: 72.57 kg

DRUGS (1)
  1. MIRENA [Suspect]
     Active Substance: LEVONORGESTREL
     Indication: Product used for unknown indication

REACTIONS (7)
  - Weight increased [None]
  - Anxiety [None]
  - Depression [None]
  - Abdominal distension [None]
  - Breast tenderness [None]
  - Migraine [None]
  - Fatigue [None]

NARRATIVE: CASE EVENT DATE: 20180831
